FAERS Safety Report 6030630-5 (Version None)
Quarter: 2009Q1

REPORT INFORMATION
  Report Type: 
  Country: None (occurrence: None)
  Receive Date: 20090107
  Receipt Date: 20081231
  Transmission Date: 20090719
  Serious: Yes (Hospitalization, Other)
  Sender: FDA-Public Use
  Company Number: US-AMGEN-QUU326499

PATIENT
  Sex: Female

DRUGS (1)
  1. ENBREL [Suspect]
     Indication: RHEUMATOID ARTHRITIS
     Route: 058

REACTIONS (7)
  - CONSTIPATION [None]
  - FUNGAL INFECTION [None]
  - INJECTION SITE IRRITATION [None]
  - IRRITABLE BOWEL SYNDROME [None]
  - MIGRAINE [None]
  - OBESITY [None]
  - WEIGHT INCREASED [None]
